FAERS Safety Report 25964767 (Version 1)
Quarter: 2025Q4

REPORT INFORMATION
  Report Type: Spontaneous
  Country: EU (occurrence: EU)
  Receive Date: 20251027
  Receipt Date: 20251027
  Transmission Date: 20260118
  Serious: Yes (Hospitalization)
  Sender: EMD SERONO INC
  Company Number: EU-Merck Healthcare KGaA-2025054263

PATIENT
  Age: 69 Year
  Sex: Male
  Weight: 76 kg

DRUGS (2)
  1. AVELUMAB [Suspect]
     Active Substance: AVELUMAB
     Indication: Product used for unknown indication
     Dates: start: 20201112, end: 20220824
  2. ENFORTUMAB VEDOTIN [Suspect]
     Active Substance: ENFORTUMAB VEDOTIN
     Indication: Product used for unknown indication

REACTIONS (1)
  - Neuropathy peripheral [Recovering/Resolving]

NARRATIVE: CASE EVENT DATE: 20230412
